FAERS Safety Report 7014479-2 (Version None)
Quarter: 2010Q3

REPORT INFORMATION
  Report Type: 
  Country: None (occurrence: None)
  Receive Date: 20100927
  Receipt Date: 20100913
  Transmission Date: 20110219
  Serious: Yes (Hospitalization)
  Sender: FDA-Public Use
  Company Number: ES-ELI_LILLY_AND_COMPANY-ES201009003492

PATIENT
  Sex: Female
  Weight: 70 kg

DRUGS (12)
  1. FORTEO [Suspect]
     Indication: OSTEOPOROSIS
     Dosage: 20 UG, DAILY (1/D)
     Route: 058
     Dates: start: 20100323
  2. EMCONCOR [Concomitant]
     Indication: ARRHYTHMIA
     Dosage: 2.5 MG, DAILY (1/D)
     Route: 048
  3. NEXIUM [Concomitant]
     Indication: PROPHYLAXIS AGAINST GASTROINTESTINAL ULCER
     Dosage: UNK, DAILY (1/D)
     Route: 048
  4. PLAVIX [Concomitant]
     Dosage: 75 MG, DAILY (1/D)
     Route: 048
  5. CALCIUM SANDOZ [Concomitant]
     Indication: OSTEOPOROSIS
     Dosage: UNK, DAILY (1/D)
     Route: 048
  6. LORAZEPAM [Concomitant]
     Indication: ANXIETY
     Dosage: HALF UNK, 2/D
     Route: 048
  7. DUPHALAC [Concomitant]
     Indication: CONSTIPATION
     Dosage: 1-2 UNK, DAILY (1/D)
     Route: 048
  8. METOJECT [Concomitant]
     Indication: ARTHRITIS
     Dosage: UNK, WEEKLY (1/W)
     Route: 058
  9. CROMATONBIC FERRO [Concomitant]
     Indication: IRON DEFICIENCY ANAEMIA
     Dosage: 1 MG, DAILY (1/D)
     Route: 048
  10. ACOVIL [Concomitant]
     Indication: HYPERTENSION
     Dosage: 10 MG, DAILY (1/D)
     Route: 048
  11. CIPRALEX [Concomitant]
     Indication: DEPRESSION
     Dosage: 10 MG, DAILY (1/D)
     Route: 048
  12. ACETAMINOPHEN [Concomitant]
     Indication: ANALGESIC THERAPY
     Dosage: 650 MG, EVERY 8 HRS
     Route: 048

REACTIONS (4)
  - ALOPECIA [None]
  - BLOOD IRON DECREASED [None]
  - CRUSH INJURY [None]
  - STOMATITIS [None]
